FAERS Safety Report 18537725 (Version 1)
Quarter: 2020Q4

REPORT INFORMATION
  Report Type: Spontaneous
  Country: IN (occurrence: IN)
  Receive Date: 20201123
  Receipt Date: 20201123
  Transmission Date: 20210114
  Serious: Yes (Hospitalization)
  Sender: FDA-Public Use
  Company Number: IN-PRINSTON PHARMACEUTICAL INC.-2020PRN00395

PATIENT
  Age: 80 Year
  Sex: Male

DRUGS (6)
  1. DIVALPROEX SODIUM. [Suspect]
     Active Substance: DIVALPROEX SODIUM
     Indication: DEMENTIA
     Dosage: 125 MG, 1X/DAY
     Route: 065
  2. DUOLIN [Concomitant]
     Indication: ASTHMA
  3. QUETIAPINE. [Concomitant]
     Active Substance: QUETIAPINE
     Dosage: 125 UNK
     Route: 065
  4. ENALAPRIL [Concomitant]
     Active Substance: ENALAPRIL
     Indication: HYPERTENSION
     Dosage: 5 MG, 1X/DAY
     Route: 065
  5. QUETIAPINE. [Concomitant]
     Active Substance: QUETIAPINE
     Indication: DEMENTIA
     Dosage: 50 MG, 1X/DAY
     Route: 065
  6. QUETIAPINE. [Concomitant]
     Active Substance: QUETIAPINE
     Dosage: 100 UNK
     Route: 065

REACTIONS (1)
  - Hydrocephalus [Recovering/Resolving]
